FAERS Safety Report 16168199 (Version 7)
Quarter: 2022Q4

REPORT INFORMATION
  Report Type: Spontaneous
  Country: US (occurrence: US)
  Receive Date: 20190408
  Receipt Date: 20221128
  Transmission Date: 20230112
  Serious: No
  Sender: FDA-Public Use
  Company Number: US-PFIZER INC-2019151274

PATIENT
  Age: 72 Year
  Sex: Female

DRUGS (4)
  1. RAPAMUNE [Suspect]
     Active Substance: SIROLIMUS
     Indication: Liver transplant
     Dosage: 2 MG, DAILY
     Route: 048
  2. RAPAMUNE [Suspect]
     Active Substance: SIROLIMUS
     Indication: Drug therapy
  3. RAPAMUNE [Suspect]
     Active Substance: SIROLIMUS
     Indication: Liver transplant
     Dosage: 2 TABLET, 1X/DAY
  4. RAPAMUNE [Suspect]
     Active Substance: SIROLIMUS
     Indication: Drug therapy

REACTIONS (3)
  - Off label use [Unknown]
  - Malaise [Unknown]
  - Condition aggravated [Unknown]
